FAERS Safety Report 4814935-9 (Version None)
Quarter: 2005Q4

REPORT INFORMATION
  Report Type: 
  Country: None (occurrence: None)
  Receive Date: 20051028
  Receipt Date: 20051020
  Transmission Date: 20060501
  Serious: Yes (Other)
  Sender: FDA-Public Use
  Company Number: 2005UW15980

PATIENT
  Age: 3 Year
  Sex: Male

DRUGS (3)
  1. PULMICORT [Suspect]
     Indication: ASTHMA
     Route: 055
     Dates: start: 20051018
  2. PULMICORT [Suspect]
     Dosage: EVERY 12 HOURS
     Route: 055
     Dates: start: 20051018
  3. VENTOLIN [Concomitant]
     Route: 055

REACTIONS (3)
  - ASTHMA [None]
  - CONDITION AGGRAVATED [None]
  - RESPIRATORY RATE INCREASED [None]
